FAERS Safety Report 23694630 (Version 2)
Quarter: 2024Q2

REPORT INFORMATION
  Report Type: Report from Study
  Country: US (occurrence: US)
  Receive Date: 20240402
  Receipt Date: 20240402
  Transmission Date: 20240716
  Serious: Yes (Hospitalization)
  Sender: FDA-Public Use
  Company Number: US-ABBVIE-5499567

PATIENT
  Age: 52 Year
  Sex: Male

DRUGS (4)
  1. DUOPA [Suspect]
     Active Substance: CARBIDOPA\LEVODOPA
     Indication: Parkinson^s disease
     Dosage: FREQUENCY: ADMINISTER CONTENTS OF 2 CASSETTES VIA PEG-J FOR UP TO 24 HOURS EACH DAY. MORNING DOSE...
     Route: 050
     Dates: start: 20230101
  2. DUOPA [Suspect]
     Active Substance: CARBIDOPA\LEVODOPA
     Dosage: DUOPA (100ML X 7)?STRENGTH: 4.63 TO 20MG,?ADMINISTER CONTENTS OF TWO CASSETTES UP TO 24 HOURS EAC...
     Route: 050
     Dates: start: 202106
  3. DUOPA [Suspect]
     Active Substance: CARBIDOPA\LEVODOPA
     Route: 050
     Dates: start: 202107
  4. DUOPA [Suspect]
     Active Substance: CARBIDOPA\LEVODOPA
     Route: 050

REACTIONS (6)
  - Seizure [Unknown]
  - Anxiety [Unknown]
  - Hospitalisation [Recovered/Resolved]
  - Tremor [Unknown]
  - Drug ineffective [Unknown]
  - Loss of personal independence in daily activities [Unknown]

NARRATIVE: CASE EVENT DATE: 20230901
